FAERS Safety Report 8508335-8 (Version None)
Quarter: 2012Q3

REPORT INFORMATION
  Report Type: 
  Country: None (occurrence: None)
  Receive Date: 20120713
  Receipt Date: 20120704
  Transmission Date: 20120928
  Serious: Yes (Hospitalization)
  Sender: FDA-Public Use
  Company Number: CA-JNJFOC-20120702541

PATIENT
  Sex: Male
  Weight: 75.6 kg

DRUGS (12)
  1. REMICADE [Suspect]
     Indication: COLITIS ULCERATIVE
     Route: 042
     Dates: start: 20120327
  2. CRESTOR [Concomitant]
     Route: 065
  3. BAYER ASA [Concomitant]
     Route: 065
  4. LASIX [Concomitant]
     Route: 065
  5. MICARDIS [Concomitant]
     Route: 065
  6. PREDNISONE [Concomitant]
     Route: 065
  7. NASACORT [Concomitant]
     Route: 065
  8. FOLIC ACID [Concomitant]
     Route: 065
  9. INSULIN [Concomitant]
     Route: 065
  10. SLOW-K [Concomitant]
     Route: 065
  11. ATENOLOL [Concomitant]
     Route: 065
  12. ALLOPURINOL [Concomitant]
     Route: 065

REACTIONS (4)
  - DEHYDRATION [None]
  - COLITIS ULCERATIVE [None]
  - DECREASED APPETITE [None]
  - ASTHENIA [None]
